FAERS Safety Report 22034843 (Version 1)
Quarter: 2023Q1

REPORT INFORMATION
  Report Type: Spontaneous
  Country: US (occurrence: US)
  Receive Date: 20230224
  Receipt Date: 20230224
  Transmission Date: 20230417
  Serious: Yes (Hospitalization, Other)
  Sender: FDA-Public Use
  Company Number: US-BRISTOL-MYERS SQUIBB COMPANY-2023-025396

PATIENT
  Age: 40 Year
  Sex: Male

DRUGS (2)
  1. THALOMID [Suspect]
     Active Substance: THALIDOMIDE
     Indication: Leprosy
     Route: 048
     Dates: start: 20230125
  2. THALOMID [Suspect]
     Active Substance: THALIDOMIDE

REACTIONS (1)
  - Thrombosis [Unknown]
